FAERS Safety Report 24981279 (Version 1)
Quarter: 2025Q1

REPORT INFORMATION
  Report Type: Spontaneous
  Country: US (occurrence: None)
  Receive Date: 20250217
  Receipt Date: 20250217
  Transmission Date: 20250408
  Serious: Yes (Other)
  Sender: FDA-CTU
  Company Number: None

PATIENT
  Age: 48 Year
  Sex: Female
  Weight: 63 kg

DRUGS (7)
  1. BIMZELX [Suspect]
     Active Substance: BIMEKIZUMAB-BKZX
     Indication: Psoriatic arthropathy
     Route: 058
     Dates: start: 20240913, end: 20250124
  2. ESTRADIOL TRANSDERMAL SYSTEM [Concomitant]
     Active Substance: ESTRADIOL
  3. PROGESTERONE [Concomitant]
     Active Substance: PROGESTERONE
  4. LORAZEPAM [Concomitant]
     Active Substance: LORAZEPAM
  5. LUBIPROSTONE [Concomitant]
     Active Substance: LUBIPROSTONE
  6. VITAMINS [Concomitant]
     Active Substance: VITAMINS
  7. CALCIUM\VITAMIN D [Concomitant]
     Active Substance: CALCIUM\VITAMIN D

REACTIONS (9)
  - Laboratory test abnormal [None]
  - Fatigue [None]
  - Asthenia [None]
  - Oral pain [None]
  - Nasopharyngitis [None]
  - Dyspnoea [None]
  - Pain [None]
  - Erythromelalgia [None]
  - Compartment syndrome [None]

NARRATIVE: CASE EVENT DATE: 20250212
